FAERS Safety Report 17281899 (Version 1)
Quarter: 2020Q1

REPORT INFORMATION
  Report Type: Spontaneous
  Country: US (occurrence: US)
  Receive Date: 20191228
  Receipt Date: 20191228
  Transmission Date: 20200409
  Serious: Yes (Hospitalization)
  Sender: FDA-Public Use
  Company Number: None

PATIENT
  Sex: Male
  Weight: 95 kg

DRUGS (4)
  1. CYCLOPHOSPHAMIDE. [Suspect]
     Active Substance: CYCLOPHOSPHAMIDE
     Dates: start: 20191004
  2. METHOTREXATE. [Concomitant]
     Active Substance: METHOTREXATE
  3. MERCAPTOPURINE. [Concomitant]
     Active Substance: MERCAPTOPURINE
  4. CYTARABINE. [Concomitant]
     Active Substance: CYTARABINE

REACTIONS (12)
  - Fatigue [None]
  - Vomiting [None]
  - Abdominal distension [None]
  - Anaemia [None]
  - Neutropenia [None]
  - Diarrhoea [None]
  - Platelet count decreased [None]
  - Headache [None]
  - Decreased appetite [None]
  - Blood bilirubin increased [None]
  - Dehydration [None]
  - White blood cell count decreased [None]

NARRATIVE: CASE EVENT DATE: 20191220
